FAERS Safety Report 9765209 (Version 3)
Quarter: 2015Q1

REPORT INFORMATION
  Report Type: Spontaneous
  Country: US (occurrence: US)
  Receive Date: 20131217
  Receipt Date: 20150102
  Transmission Date: 20150721
  Serious: No
  Sender: FDA-Public Use
  Company Number: US-GLAXOSMITHKLINE-A1002298A

PATIENT
  Age: 75 Year
  Sex: Male

DRUGS (12)
  1. VOTRIENT [Suspect]
     Active Substance: PAZOPANIB HYDROCHLORIDE
     Indication: MALIGNANT URINARY TRACT NEOPLASM
     Dosage: UNK
     Dates: start: 20111001
  2. ECONAZOLE NITRATE. [Concomitant]
     Active Substance: ECONAZOLE NITRATE
  3. VOTRIENT [Suspect]
     Active Substance: PAZOPANIB HYDROCHLORIDE
     Dosage: 200 MG, U
     Dates: start: 20111013
  4. CLOBETASOL PROPIONATE. [Concomitant]
     Active Substance: CLOBETASOL PROPIONATE
  5. ATROPINE + DIPHENOXYLATE [Concomitant]
  6. VOTRIENT [Suspect]
     Active Substance: PAZOPANIB HYDROCHLORIDE
     Indication: RENAL CANCER
     Dosage: UNK
     Dates: start: 20111001
  7. LISINOPRIL. [Concomitant]
     Active Substance: LISINOPRIL
  8. LOVASTATIN. [Concomitant]
     Active Substance: LOVASTATIN
  9. POLYETHYLENE GLYCOL [Concomitant]
     Active Substance: POLYETHYLENE GLYCOLS
  10. AMLODIPINE [Concomitant]
     Active Substance: AMLODIPINE BESYLATE
  11. CEPHALEXIN. [Concomitant]
     Active Substance: CEPHALEXIN
  12. VOTRIENT [Suspect]
     Active Substance: PAZOPANIB HYDROCHLORIDE
     Indication: RENAL CANCER
     Dosage: 200 MG TABLET200 MG, 3 TABLES DAILY (600 MG)18SEP14:  MISSED DOSES, DECREASED TO 400 MG DAILY N[...]
     Route: 065
     Dates: start: 20111001

REACTIONS (9)
  - Drug dose omission [Recovered/Resolved]
  - Abdominal pain [Unknown]
  - Asthenia [Unknown]
  - Diarrhoea [Recovered/Resolved]
  - Hair colour changes [Unknown]
  - Drug dose omission [Unknown]
  - Fatigue [Unknown]
  - Contusion [Unknown]
  - Vomiting [Recovered/Resolved]

NARRATIVE: CASE EVENT DATE: 201410
